FAERS Safety Report 10769765 (Version 2)
Quarter: 2015Q1

REPORT INFORMATION
  Report Type: Spontaneous
  Country: US (occurrence: US)
  Receive Date: 20150206
  Receipt Date: 20150212
  Transmission Date: 20150721
  Serious: No
  Sender: FDA-Public Use
  Company Number: US-009507513-1502USA002546

PATIENT
  Age: 68 Year
  Sex: Female

DRUGS (1)
  1. COZAAR [Suspect]
     Active Substance: LOSARTAN POTASSIUM
     Indication: BLOOD PRESSURE
     Dosage: 50 MG, TWICE DAY
     Route: 048
     Dates: start: 20150122, end: 20150125

REACTIONS (4)
  - Abdominal distension [Unknown]
  - Abdominal pain upper [Recovering/Resolving]
  - Peripheral swelling [Unknown]
  - Myalgia [Recovering/Resolving]

NARRATIVE: CASE EVENT DATE: 201501
